FAERS Safety Report 9998103 (Version 2)
Quarter: 2014Q2

REPORT INFORMATION
  Report Type: Report from Study
  Country: US (occurrence: US)
  Receive Date: 20140311
  Receipt Date: 20140411
  Transmission Date: 20141212
  Serious: Yes (Hospitalization)
  Sender: FDA-Public Use
  Company Number: US-B.I. PHARMACEUTICALS,INC./RIDGEFIELD-2014-BI-10064BI

PATIENT
  Age: 68 Year
  Sex: Female
  Weight: 112.9 kg

DRUGS (15)
  1. DABIGATRAN [Suspect]
     Indication: ATRIAL FIBRILLATION
     Dosage: 75 MG
     Route: 048
     Dates: end: 20110910
  2. REQUIP [Concomitant]
     Dosage: 0.5 MG
     Route: 048
  3. ALLOPURINOL [Concomitant]
     Dosage: 150 MG
     Route: 048
  4. LASIX [Concomitant]
     Dosage: 80 MG
     Route: 048
  5. DIGOXIN [Concomitant]
     Dosage: 125 MCG
     Route: 048
  6. GLIPIZIDE [Concomitant]
     Dosage: 2.5 MG
     Route: 048
  7. METOLAZONE [Concomitant]
     Dosage: 2.5 MG
     Route: 048
  8. CARDIZEM [Concomitant]
     Dosage: 360 MG
     Route: 048
  9. IRON [Concomitant]
     Dosage: 325 MG
     Route: 048
  10. SPIRIVA [Concomitant]
     Dosage: 100 MG
     Route: 065
  11. CADES [Concomitant]
     Dosage: 100 MG
     Route: 048
  12. Q VAR [Concomitant]
     Dosage: 80 MG
     Route: 065
  13. EPOGEN [Concomitant]
     Dosage: 20000 U
     Route: 065
  14. ASPIRIN [Concomitant]
     Dosage: 81 MG
     Route: 065
  15. K DUR [Concomitant]
     Dosage: 20 MEQ
     Route: 065

REACTIONS (2)
  - Haematuria [Unknown]
  - Urinary tract infection [Unknown]
